FAERS Safety Report 8659950 (Version 2)
Quarter: 2012Q4

REPORT INFORMATION
  Report Type: 
  Country: CO (occurrence: CO)
  Receive Date: 20120711
  Receipt Date: 20121005
  Transmission Date: 20130627
  Serious: Yes (Other)
  Sender: FDA-Public Use
  Company Number: CO-ASTRAZENECA-2012SE45850

PATIENT
  Age: 51 Year
  Sex: Female

DRUGS (2)
  1. BETALOC ZOK [Suspect]
     Route: 048
     Dates: start: 20100629, end: 20120629
  2. BETALOC ZOK [Suspect]
     Route: 048

REACTIONS (2)
  - Asphyxia [Recovered/Resolved]
  - Arrhythmia [Recovered/Resolved]
